FAERS Safety Report 8350490-7 (Version None)
Quarter: 2012Q2

REPORT INFORMATION
  Report Type: 
  Country: None (occurrence: None)
  Receive Date: 20120510
  Receipt Date: 20120503
  Transmission Date: 20120825
  Serious: Yes (Hospitalization)
  Sender: FDA-Public Use
  Company Number: US-BAYER-2012-044799

PATIENT
  Age: 47 Year
  Sex: Female
  Weight: 81.633 kg

DRUGS (21)
  1. FISH OIL [Concomitant]
     Indication: BLOOD CHOLESTEROL DECREASED
     Dosage: UNK
     Dates: start: 20100401
  2. CALCIUM [Concomitant]
     Indication: BONE DENSITY INCREASED
     Dosage: UNK
     Dates: start: 20100401
  3. YAZ [Suspect]
     Indication: CONTRACEPTION
     Dosage: UNK
     Dates: start: 20090101, end: 20100425
  4. YASMIN [Suspect]
     Dosage: UNK
     Dates: start: 20080428
  5. YASMIN [Suspect]
     Dosage: UNK
     Dates: start: 20080721
  6. YASMIN [Suspect]
     Indication: MENORRHAGIA
     Dosage: UNK
     Dates: start: 20050217, end: 20071121
  7. DROSPIRENONE AND ETHINYL ESTRADIOL [Suspect]
     Dosage: UNK
     Dates: start: 20090430
  8. IBUPROFEN [Concomitant]
     Indication: MUSCULOSKELETAL PAIN
     Dosage: UNK UNK, PRN
  9. LEVOTHYROXINE SODIUM [Concomitant]
     Dosage: 75 MCG/24HR, UNK
  10. YAZ [Suspect]
     Indication: MENORRHAGIA
  11. LEVOTHYROXINE SODIUM [Concomitant]
     Dosage: UNK
     Dates: start: 19981224
  12. BENADRYL [Concomitant]
     Indication: MULTIPLE ALLERGIES
  13. LEVOTHYROXINE SODIUM [Concomitant]
     Dosage: UNK
     Route: 048
     Dates: start: 19870101
  14. VITAMIN D [Concomitant]
     Dosage: UNK, BID
     Route: 048
  15. ELETRIPTAN [Concomitant]
     Dosage: 40 MG, PRN, MAY REPEAT IN 2 HOURS IF NECESSARY
     Route: 048
     Dates: start: 20100423
  16. VITAMIN D [Concomitant]
     Indication: BONE DENSITY INCREASED
     Dosage: UNK
     Dates: start: 20100401
  17. DROSPIRENONE AND ETHINYL ESTRADIOL [Suspect]
     Indication: MENORRHAGIA
     Dosage: UNK
     Dates: start: 20090208
  18. DIPHENHYDRAMINE HCL [Concomitant]
  19. EXCEDRIN [CAFFEINE,PARACETAMOL] [Concomitant]
     Indication: HEADACHE
     Dosage: UNK
     Dates: start: 20100401
  20. BENADRYL [Concomitant]
     Indication: HEADACHE
  21. XALATAN [Concomitant]
     Route: 047

REACTIONS (3)
  - TRANSVERSE SINUS THROMBOSIS [None]
  - NECK PAIN [None]
  - MUSCULOSKELETAL PAIN [None]
